FAERS Safety Report 9207770 (Version 2)
Quarter: 2014Q1

REPORT INFORMATION
  Report Type: Spontaneous
  Country: US (occurrence: US)
  Receive Date: 20130403
  Receipt Date: 20140106
  Transmission Date: 20141002
  Serious: Yes (Other)
  Sender: FDA-Public Use
  Company Number: US-BAYER-2013-041349

PATIENT
  Age: 29 Year
  Sex: Female

DRUGS (3)
  1. YAZ [Suspect]
     Dosage: UNK
     Dates: start: 2005
  2. YASMIN [Suspect]
     Dosage: UNK
     Dates: start: 2005
  3. PRISTIQ [Concomitant]
     Dosage: UNK

REACTIONS (6)
  - Gallbladder injury [None]
  - Pain [None]
  - Injury [None]
  - Pain [None]
  - Biliary dyskinesia [None]
  - Cholecystitis [None]
